FAERS Safety Report 8337576-8 (Version None)
Quarter: 2012Q2

REPORT INFORMATION
  Report Type: 
  Country: None (occurrence: None)
  Receive Date: 20120504
  Receipt Date: 20110831
  Transmission Date: 20120825
  Serious: No
  Sender: FDA-Public Use
  Company Number: US-TEVA-2011004664

PATIENT
  Sex: Female

DRUGS (6)
  1. NUVIGIL [Suspect]
     Indication: FATIGUE
  2. THYROID [Concomitant]
  3. NUVIGIL [Suspect]
     Indication: DEPRESSION
     Route: 048
  4. CYMBALTA [Concomitant]
  5. VYVANSE [Concomitant]
  6. ADDERALL 5 [Concomitant]

REACTIONS (1)
  - TONGUE ULCERATION [None]
